FAERS Safety Report 11793810 (Version 1)
Quarter: 2015Q4

REPORT INFORMATION
  Report Type: Spontaneous
  Country: US (occurrence: US)
  Receive Date: 20151202
  Receipt Date: 20151202
  Transmission Date: 20160305
  Serious: No
  Sender: FDA-Public Use
  Company Number: US-SILVERGATE PHARMACEUTICALS, INC.-2015SIL00003

PATIENT
  Age: 3 Year
  Sex: Male
  Weight: 11.79 kg

DRUGS (3)
  1. EPANED [Suspect]
     Active Substance: ENALAPRIL MALEATE
     Indication: ATRIAL SEPTAL DEFECT
  2. EPANED [Suspect]
     Active Substance: ENALAPRIL MALEATE
     Indication: CARDIAC MURMUR
     Dosage: 2.9 ML, 2X/DAY
     Route: 048
     Dates: start: 20150916
  3. EPANED [Suspect]
     Active Substance: ENALAPRIL MALEATE
     Indication: VENTRICULAR SEPTAL DEFECT

REACTIONS (3)
  - Oral discomfort [Recovered/Resolved]
  - Reaction to drug excipients [None]
  - Fear [Unknown]

NARRATIVE: CASE EVENT DATE: 20150916
